FAERS Safety Report 18612290 (Version 2)
Quarter: 2020Q4

REPORT INFORMATION
  Report Type: Spontaneous
  Country: US (occurrence: US)
  Receive Date: 20201214
  Receipt Date: 20201214
  Transmission Date: 20210114
  Serious: Yes (Hospitalization)
  Sender: FDA-Public Use
  Company Number: US-CELGENEUS-USA-20201202874

PATIENT
  Sex: Female
  Weight: 68.1 kg

DRUGS (3)
  1. THALOMID [Suspect]
     Active Substance: THALIDOMIDE
     Indication: CASTLEMAN^S DISEASE
     Dosage: 100 MILLIGRAM
     Route: 048
     Dates: start: 202005
  2. PREDNISONE. [Concomitant]
     Active Substance: PREDNISONE
     Indication: PRODUCT USED FOR UNKNOWN INDICATION
     Route: 048
  3. THALOMID [Suspect]
     Active Substance: THALIDOMIDE
     Indication: OFF LABEL USE

REACTIONS (4)
  - Castleman^s disease [Unknown]
  - Stress [Unknown]
  - Anxiety [Unknown]
  - Tension headache [Unknown]

NARRATIVE: CASE EVENT DATE: 2020
